FAERS Safety Report 14479630 (Version 1)
Quarter: 2018Q1

REPORT INFORMATION
  Report Type: Spontaneous
  Country: US (occurrence: US)
  Receive Date: 20180202
  Receipt Date: 20180202
  Transmission Date: 20180509
  Serious: Yes (Other)
  Sender: FDA-Public Use
  Company Number: US-ROCHE-2064444

PATIENT
  Age: 60 Year
  Sex: Female

DRUGS (5)
  1. VASOPRESSIN. [Concomitant]
     Active Substance: VASOPRESSIN
     Indication: HAEMODYNAMIC INSTABILITY
     Route: 065
     Dates: start: 201202
  2. ALTEPLASE. [Suspect]
     Active Substance: ALTEPLASE
     Indication: PULMONARY EMBOLISM
     Route: 040
     Dates: start: 201202
  3. NOREPINEPHRINE. [Concomitant]
     Active Substance: NOREPINEPHRINE
     Indication: HAEMODYNAMIC INSTABILITY
     Route: 065
     Dates: start: 201202
  4. ALTEPLASE. [Suspect]
     Active Substance: ALTEPLASE
     Dosage: OVER 2 HOURS
     Route: 041
     Dates: start: 201202
  5. EPINEPHRINE. [Concomitant]
     Active Substance: EPINEPHRINE
     Indication: HAEMODYNAMIC INSTABILITY
     Route: 065
     Dates: start: 201202

REACTIONS (5)
  - Off label use [Unknown]
  - Catheter site haemorrhage [Unknown]
  - Haemorrhagic anaemia [Unknown]
  - Rectal haemorrhage [Unknown]
  - Vaginal haemorrhage [Unknown]

NARRATIVE: CASE EVENT DATE: 201202
